APPROVED DRUG PRODUCT: FENTANYL CITRATE PRESERVATIVE FREE
Active Ingredient: FENTANYL CITRATE
Strength: EQ 0.05MG BASE/ML
Dosage Form/Route: INJECTABLE;INJECTION
Application: A210762 | Product #001 | TE Code: AP
Applicant: FRESENIUS KABI USA LLC
Approved: May 3, 2019 | RLD: No | RS: No | Type: RX